FAERS Safety Report 9374742 (Version 1)
Quarter: 2013Q2

REPORT INFORMATION
  Report Type: Spontaneous
  Country: CN (occurrence: CN)
  Receive Date: 20130628
  Receipt Date: 20130628
  Transmission Date: 20140414
  Serious: Yes (Hospitalization)
  Sender: FDA-Public Use
  Company Number: CN-JNJFOC-20130613211

PATIENT
  Age: 46 Year
  Sex: Male

DRUGS (1)
  1. NIZORAL [Suspect]
     Indication: FUNGAL INFECTION
     Route: 048
     Dates: start: 20120722, end: 20120801

REACTIONS (3)
  - Hepatic pain [Recovered/Resolved]
  - Fatigue [Recovered/Resolved]
  - Decreased appetite [Recovered/Resolved]
